FAERS Safety Report 20949794 (Version 2)
Quarter: 2022Q3

REPORT INFORMATION
  Report Type: Report from Study
  Country: US (occurrence: US)
  Receive Date: 20220613
  Receipt Date: 20220712
  Transmission Date: 20221026
  Serious: No
  Sender: FDA-Public Use
  Company Number: US-SAGE-2022SAGE000053

PATIENT
  Age: 43 Year
  Sex: Female

DRUGS (8)
  1. ZULRESSO [Suspect]
     Active Substance: BREXANOLONE
     Indication: Perinatal depression
     Dosage: AT THE RATE OF 3.1 ML/HR FROM FIRST INFUSION BAG
     Route: 042
     Dates: start: 20210619, end: 20210619
  2. ZULRESSO [Suspect]
     Active Substance: BREXANOLONE
     Dosage: AT THE RATE OF 6.1 ML/HR FROM FIRST INFUSION BAG
     Route: 042
     Dates: start: 20210619, end: 20210620
  3. ZULRESSO [Suspect]
     Active Substance: BREXANOLONE
     Dosage: NEW BAG (2ND BAG) STARTED AT THE RATE OF 6.1 ML/HR
     Route: 042
     Dates: start: 20210620, end: 20210620
  4. ZULRESSO [Suspect]
     Active Substance: BREXANOLONE
     Dosage: NEW BAG (3RD BAG) STARTED AT THE RATE OF 9.2 ML/HR
     Route: 042
     Dates: start: 20210620, end: 20210620
  5. ZULRESSO [Suspect]
     Active Substance: BREXANOLONE
     Dosage: NEW BAG (4TH BAG) STARTED AT THE RATE OF 9.2 ML/HR
     Route: 042
     Dates: start: 20210620, end: 20210621
  6. ZULRESSO [Suspect]
     Active Substance: BREXANOLONE
     Dosage: NEW BAG (5TH BAG) STARTED AT THE RATE OF 9.2 ML/HR
     Route: 042
     Dates: start: 20210621, end: 20210621
  7. ZULRESSO [Suspect]
     Active Substance: BREXANOLONE
     Dosage: AT THE RATE OF 6.1 ML/HR FROM FIFTH INFUSION BAG
     Route: 042
     Dates: start: 20210621, end: 20210621
  8. ZULRESSO [Suspect]
     Active Substance: BREXANOLONE
     Dosage: AT THE RATE OF 3.1 ML/HR FROM FIFTH INFUSION BAG
     Route: 042
     Dates: start: 20210621, end: 20210622

REACTIONS (1)
  - Drug monitoring procedure incorrectly performed [Unknown]

NARRATIVE: CASE EVENT DATE: 20210621
